FAERS Safety Report 6039252-3 (Version None)
Quarter: 2009Q1

REPORT INFORMATION
  Report Type: 
  Country: None (occurrence: None)
  Receive Date: 20090115
  Receipt Date: 20090109
  Transmission Date: 20090719
  Serious: Yes (Death)
  Sender: FDA-Public Use
  Company Number: PHBS2009DE00483

PATIENT
  Age: 67 Year
  Sex: Male

DRUGS (8)
  1. CYCLOSPORINE [Suspect]
     Indication: WEGENER'S GRANULOMATOSIS
     Dosage: 175 MG, BID
  2. RITUXIMAB [Suspect]
     Indication: VASCULITIS
  3. COTRIM [Suspect]
  4. PREDNISOLONE [Concomitant]
     Indication: WEGENER'S GRANULOMATOSIS
     Dosage: 10 MG/DAY
  5. PREDNISOLONE [Concomitant]
     Dosage: 7.5 MG/DAY
  6. CYCLOPHOSPHAMIDE [Concomitant]
     Indication: VASCULITIS
     Route: 048
  7. INFLIXIMAB [Concomitant]
     Indication: VASCULITIS
  8. DEOXYSPERGUALIN [Concomitant]

REACTIONS (4)
  - LEUKOPENIA [None]
  - LOWER RESPIRATORY TRACT INFLAMMATION [None]
  - PNEUMONIA [None]
  - TRACHEAL INFLAMMATION [None]
